FAERS Safety Report 11952022 (Version 1)
Quarter: 2016Q1

REPORT INFORMATION
  Report Type: Spontaneous
  Country: GB (occurrence: GB)
  Receive Date: 20160126
  Receipt Date: 20160126
  Transmission Date: 20160526
  Serious: Yes (Life-Threatening, Hospitalization, Disabling)
  Sender: FDA-Public Use
  Company Number: GB-TEVA-626627ACC

PATIENT
  Age: 67 Year
  Sex: Female

DRUGS (19)
  1. FUROSEMIDE. [Concomitant]
     Active Substance: FUROSEMIDE
  2. NAPROXEN. [Concomitant]
     Active Substance: NAPROXEN
  3. PIPERACILLIN AND TAZOBACTAM [Concomitant]
     Active Substance: PIPERACILLIN SODIUM\TAZOBACTAM SODIUM
  4. SEPTRIN [Concomitant]
     Active Substance: SULFAMETHOXAZOLE\TRIMETHOPRIM
  5. HUMAN ACTRAPID [Concomitant]
     Active Substance: INSULIN HUMAN
  6. METRONIDAZOLE. [Concomitant]
     Active Substance: METRONIDAZOLE
  7. PROPOFOL. [Concomitant]
     Active Substance: PROPOFOL
  8. RAMIPRIL. [Concomitant]
     Active Substance: RAMIPRIL
  9. ALFENTANIL. [Concomitant]
     Active Substance: ALFENTANIL
  10. ENOXAPARIN [Concomitant]
     Active Substance: ENOXAPARIN
  11. SENNA [Concomitant]
     Active Substance: SENNA LEAF\SENNOSIDES\SENNOSIDES A AND B
  12. PREDNISOLONE. [Concomitant]
     Active Substance: PREDNISOLONE
  13. METHOTREXATE [Suspect]
     Active Substance: METHOTREXATE
     Indication: RHEUMATOID ARTHRITIS
     Route: 048
     Dates: start: 2012, end: 2015
  14. FERROUS FUMARATE [Concomitant]
     Active Substance: FERROUS FUMARATE
  15. NOREPINEPHRINE [Concomitant]
     Active Substance: NOREPINEPHRINE\NOREPINEPHRINE BITARTRATE
  16. METHYLPREDNISOLONE. [Concomitant]
     Active Substance: METHYLPREDNISOLONE
  17. OMEPRAZOLE. [Concomitant]
     Active Substance: OMEPRAZOLE
  18. ETANERCEPT [Concomitant]
     Active Substance: ETANERCEPT
  19. FOLIC ACID. [Concomitant]
     Active Substance: FOLIC ACID

REACTIONS (5)
  - Alveolitis [Not Recovered/Not Resolved]
  - Sepsis [Not Recovered/Not Resolved]
  - Respiratory failure [Not Recovered/Not Resolved]
  - Dyspnoea [Not Recovered/Not Resolved]
  - Renal failure [Not Recovered/Not Resolved]

NARRATIVE: CASE EVENT DATE: 20151002
